FAERS Safety Report 7921794-4 (Version None)
Quarter: 2011Q4

REPORT INFORMATION
  Report Type: 
  Country: None (occurrence: None)
  Receive Date: 20111117
  Receipt Date: 20111109
  Transmission Date: 20120403
  Serious: Yes (Other)
  Sender: FDA-Public Use
  Company Number: FR-GLAXOSMITHKLINE-B0763360A

PATIENT
  Sex: Male

DRUGS (3)
  1. DIPROSALIC [Concomitant]
  2. ACITRETIN [Suspect]
     Indication: PSORIASIS
     Route: 048
     Dates: start: 19920901, end: 20070101
  3. CALCIPOTRIENE [Concomitant]

REACTIONS (2)
  - EXOSTOSIS [None]
  - INTERVERTEBRAL DISC PROTRUSION [None]
